FAERS Safety Report 7449497-3 (Version None)
Quarter: 2011Q2

REPORT INFORMATION
  Report Type: 
  Country: None (occurrence: None)
  Receive Date: 20110502
  Receipt Date: 20110420
  Transmission Date: 20111010
  Serious: Yes (Death, Life-Threatening, Hospitalization, Disabling, Other)
  Sender: FDA-Public Use
  Company Number: NL-BAYER-2011-035361

PATIENT
  Age: 81 Year
  Sex: Male
  Weight: 78 kg

DRUGS (10)
  1. CLOPIDOGREL [Suspect]
     Indication: ACUTE CORONARY SYNDROME
     Dosage: 75 MG, QD
     Route: 048
     Dates: start: 20110131
  2. ASPIRIN [Suspect]
     Indication: ACUTE CORONARY SYNDROME
     Dosage: 80 MG, QD
     Route: 048
     Dates: start: 20110131
  3. DIPYRIDAMOLE [Suspect]
     Indication: MYOCARDIAL ISCHAEMIA
     Dosage: 150 MG, BID
     Route: 048
  4. FLUTICASONE PROPIONATE W/SALMETEROL [Concomitant]
     Dosage: UNK
  5. BIVALIRUDIN [Suspect]
     Indication: PERCUTANEOUS CORONARY INTERVENTION
     Dosage: 0.75 MG/KG /H, UNK
     Route: 042
     Dates: start: 20110130, end: 20110130
  6. PRAVASTATIN [Concomitant]
     Dosage: UNK
  7. BIVALIRUDIN [Suspect]
     Dosage: 1.75 MG/KG /H, UNK
     Route: 042
     Dates: start: 20110130, end: 20110130
  8. METOPROLOL SUCCINATE [Concomitant]
  9. BIVALIRUDIN [Suspect]
     Dosage: 0.25 MG/KG /H, UNK
     Route: 042
     Dates: start: 20110130, end: 20110131
  10. ALBUTEROL SULFATE AUTOHALER [Concomitant]
     Dosage: UNK

REACTIONS (3)
  - AORTIC ANEURYSM RUPTURE [None]
  - PROCEDURAL COMPLICATION [None]
  - MULTI-ORGAN FAILURE [None]
